FAERS Safety Report 8674601 (Version 2)
Quarter: 2012Q4

REPORT INFORMATION
  Report Type: 
  Country: FR (occurrence: FR)
  Receive Date: 20120720
  Receipt Date: 20121015
  Transmission Date: 20130627
  Serious: Yes (Death, Other)
  Sender: FDA-Public Use
  Company Number: FR-ACCORD-014131

PATIENT
  Age: 63 Year
  Sex: Male

DRUGS (3)
  1. PACLITAXEL [Suspect]
     Indication: LARGE CELL LUNG CANCER
  2. CARBOPLATIN [Suspect]
     Indication: LARGE CELL LUNG CANCER
  3. VINORELBINE [Suspect]
     Indication: LARGE CELL LUNG CANCER

REACTIONS (4)
  - Radiation pneumonitis [Fatal]
  - Pseudomonas infection [Unknown]
  - Pneumothorax [Unknown]
  - Off label use [Unknown]
